FAERS Safety Report 9856818 (Version 2)
Quarter: 2014Q1

REPORT INFORMATION
  Report Type: Spontaneous
  Country: PL (occurrence: PL)
  Receive Date: 20140130
  Receipt Date: 20140130
  Transmission Date: 20141002
  Serious: Yes (Hospitalization)
  Sender: FDA-Public Use
  Company Number: PL-VERTEX PHARMACEUTICALS INC-2013-009854

PATIENT
  Age: 45 Year
  Sex: Female
  Weight: 47 kg

DRUGS (9)
  1. INCIVO [Suspect]
     Indication: PRODUCT USED FOR UNKNOWN INDICATION
     Dosage: UNK
     Route: 048
     Dates: start: 201304
  2. PEG INTERFERON [Suspect]
     Indication: PRODUCT USED FOR UNKNOWN INDICATION
     Dosage: DOSAGE FORM: UNSPECIFIED
     Route: 065
     Dates: start: 201304
  3. PEG INTERFERON [Suspect]
     Dosage: DOSAGE FORM: UNSPECIFIED, WEEK 8
  4. PEG INTERFERON [Suspect]
     Dosage: DOSAGE FORM: UNSPECIFIED, INCREASED DURING WEEK 36
     Route: 065
  5. RIBAVIRIN [Suspect]
     Indication: PRODUCT USED FOR UNKNOWN INDICATION
     Dosage: UNK
     Route: 065
     Dates: start: 201304
  6. RIBAVIRIN [Suspect]
     Dosage: 400 MG, QD
     Route: 065
  7. RIBAVIRIN [Suspect]
     Dosage: 200 MG, QD
     Route: 065
     Dates: start: 2013
  8. RIBAVIRIN [Suspect]
     Dosage: 600 MG, QD
     Route: 065
  9. RIBAVIRIN [Suspect]
     Dosage: 800 MG, QD

REACTIONS (7)
  - White blood cell count decreased [Unknown]
  - Neutrophil count decreased [Unknown]
  - Anaemia [Recovered/Resolved]
  - Platelet count decreased [Unknown]
  - Myalgia [Unknown]
  - Pruritus [Unknown]
  - Anal pruritus [Unknown]
